FAERS Safety Report 23342186 (Version 1)
Quarter: 2023Q4

REPORT INFORMATION
  Report Type: Spontaneous
  Country: JP (occurrence: JP)
  Receive Date: 20231227
  Receipt Date: 20231227
  Transmission Date: 20240110
  Serious: Yes (Other)
  Sender: FDA-Public Use
  Company Number: JP-BAYER-2023A179377

PATIENT
  Sex: Male

DRUGS (2)
  1. NUBEQA [Suspect]
     Active Substance: DAROLUTAMIDE
     Dosage: UNK
  2. NUBEQA [Suspect]
     Active Substance: DAROLUTAMIDE
     Dosage: HALF AMOUNT

REACTIONS (3)
  - Neuropathy peripheral [None]
  - Palmar-plantar erythrodysaesthesia syndrome [Unknown]
  - Oedema peripheral [None]
